FAERS Safety Report 6766925-7 (Version None)
Quarter: 2010Q2

REPORT INFORMATION
  Report Type: 
  Country: None (occurrence: None)
  Receive Date: 20100527
  Receipt Date: 20100512
  Transmission Date: 20101027
  Serious: Yes (Death)
  Sender: FDA-Public Use
  Company Number: CV20100240

PATIENT
  Age: 15 Day
  Sex: Male

DRUGS (5)
  1. VOLUVEN [Suspect]
     Indication: FLUID REPLACEMENT
     Dosage: 100 ML INTRAVENOUS (NOT OTHERWISE SPECIFIED)
     Route: 042
     Dates: start: 20100216, end: 20100216
  2. AETOXISCLEROL TAMPONNE (LAUROMACROGOL) [Concomitant]
  3. VISIPAQUE [Concomitant]
  4. VIALBREX (ALBUMIN) [Concomitant]
  5. CEFAZOLINE (CEFAZOLIN SODIUM) [Concomitant]

REACTIONS (13)
  - ACUTE PULMONARY OEDEMA [None]
  - ANURIA [None]
  - BRADYCARDIA [None]
  - CARDIOGENIC SHOCK [None]
  - COMA [None]
  - DISSEMINATED INTRAVASCULAR COAGULATION [None]
  - DRUG TOXICITY [None]
  - HYPERLACTACIDAEMIA [None]
  - HYPOTENSION [None]
  - LACTIC ACIDOSIS [None]
  - MYDRIASIS [None]
  - RESPIRATORY ARREST [None]
  - VENTRICULAR DYSFUNCTION [None]
